FAERS Safety Report 7394625-1 (Version None)
Quarter: 2011Q1

REPORT INFORMATION
  Report Type: 
  Country: None (occurrence: None)
  Receive Date: 20110324
  Receipt Date: 20110314
  Transmission Date: 20110831
  Serious: Yes (Hospitalization)
  Sender: FDA-Public Use
  Company Number: 2011SP011766

PATIENT
  Age: 27 Year
  Sex: Female
  Weight: 50 kg

DRUGS (6)
  1. RETEMIC (OXYBUTYNIN HYDROCHLORIDE) [Suspect]
     Indication: URINARY INCONTINENCE
     Dosage: PO
     Route: 048
     Dates: start: 20110309
  2. TRAMAL (TRAMADOL HYDROCHLORIDE) [Suspect]
     Indication: PAIN
     Dosage: PO
     Route: 048
     Dates: start: 20110309
  3. PIRIDIUM (FENAZOPIRIDINE) (PHENAZOPYRIDINE HYDROCHLORIDE) [Suspect]
     Indication: PRODUCT USED FOR UNKNOWN INDICATION
     Dosage: 100 MG; QD; PO
     Route: 048
     Dates: start: 20110309
  4. CIPROFLOXACIN [Suspect]
     Indication: URINARY TRACT INFECTION
     Dosage: 500 MG; QD; PO
     Route: 048
     Dates: start: 20110309
  5. IMPLANON [Suspect]
     Indication: CONTRACEPTION
     Dosage: ; SC
     Route: 058
     Dates: start: 20081215
  6. IBUPROFEN [Suspect]
     Indication: PAIN
     Dosage: PO
     Route: 048
     Dates: start: 20110309

REACTIONS (4)
  - DRUG INTERACTION [None]
  - URINARY INCONTINENCE [None]
  - URINARY TRACT INFECTION [None]
  - PAIN [None]
